FAERS Safety Report 14056351 (Version 1)
Quarter: 2017Q4

REPORT INFORMATION
  Report Type: Spontaneous
  Country: US (occurrence: US)
  Receive Date: 20171006
  Receipt Date: 20171006
  Transmission Date: 20180321
  Serious: No
  Sender: FDA-Public Use
  Company Number: US-B.I. PHARMACEUTICALS,INC./RIDGEFIELD-2017-BI-053386

PATIENT
  Age: 74 Year
  Sex: Male

DRUGS (9)
  1. ISOSORBIDE MONONITRATE. [Concomitant]
     Active Substance: ISOSORBIDE MONONITRATE
     Indication: PRODUCT USED FOR UNKNOWN INDICATION
     Dosage: STRENGTH: 60 MG; FORMULATION: TABLET
     Route: 048
  2. METFORMIN [Concomitant]
     Active Substance: METFORMIN HYDROCHLORIDE
     Indication: TYPE 2 DIABETES MELLITUS
     Dosage: STRENGTH: 1000 MG; FORMULATION: TABLET
     Route: 048
  3. JARDIANCE [Suspect]
     Active Substance: EMPAGLIFLOZIN
     Indication: TYPE 2 DIABETES MELLITUS
     Dosage: STRENGTH: 10 MG; FORMULATION: TABLET; ADMINISTRATION CORRECT? NR; ACTION TAKEN: DOSE NOT CHANGED
     Route: 048
     Dates: start: 20170629
  4. DIOVAN [Concomitant]
     Active Substance: VALSARTAN
     Indication: PRODUCT USED FOR UNKNOWN INDICATION
     Dosage: STRENGTH: 160 MG; FORMULATION: TABLET
     Route: 048
  5. PLAVIX [Concomitant]
     Active Substance: CLOPIDOGREL BISULFATE
     Indication: PRODUCT USED FOR UNKNOWN INDICATION
     Dosage: STRENGTH: 75 MG; FORMULATION: TABLET
     Route: 048
  6. TRULICITY [Concomitant]
     Active Substance: DULAGLUTIDE
     Indication: TYPE 2 DIABETES MELLITUS
     Route: 065
  7. LIPITOR [Concomitant]
     Active Substance: ATORVASTATIN CALCIUM
     Indication: PRODUCT USED FOR UNKNOWN INDICATION
     Dosage: STRENGTH: 20 MG; FORMULATION: TABLET
     Route: 048
  8. COREG [Concomitant]
     Active Substance: CARVEDILOL
     Indication: PRODUCT USED FOR UNKNOWN INDICATION
     Dosage: STRENGTH: 12.5 MG
     Route: 048
  9. LEVOTHYROXINE. [Concomitant]
     Active Substance: LEVOTHYROXINE
     Indication: PRODUCT USED FOR UNKNOWN INDICATION
     Dosage: FORMULATION: TABLET;
     Route: 048

REACTIONS (1)
  - Uveitis [Not Recovered/Not Resolved]

NARRATIVE: CASE EVENT DATE: 20170911
